FAERS Safety Report 9773164 (Version 2)
Quarter: 2014Q1

REPORT INFORMATION
  Report Type: Spontaneous
  Country: US (occurrence: US)
  Receive Date: 20131219
  Receipt Date: 20140103
  Transmission Date: 20141002
  Serious: Yes (Hospitalization)
  Sender: FDA-Public Use
  Company Number: US-PFIZER INC-2013358426

PATIENT
  Age: 64 Year
  Sex: Female
  Weight: 73.92 kg

DRUGS (3)
  1. REVATIO [Suspect]
     Indication: PULMONARY HYPERTENSION
     Dosage: 2 DF, 3X/DAY
     Route: 048
  2. COUMADIN [Concomitant]
     Indication: PROPHYLAXIS
     Dosage: 4 MG, DAILY
  3. POTASSIUM [Concomitant]
     Indication: ELECTROLYTE IMBALANCE
     Dosage: 40 MG, 3X/DAY

REACTIONS (1)
  - Fluid retention [Unknown]
